FAERS Safety Report 7212027 (Version 2)
Quarter: 2013Q4

REPORT INFORMATION
  Report Type: Spontaneous
  Country: US (occurrence: US)
  Receive Date: 20091210
  Receipt Date: 20131213
  Transmission Date: 20140711
  Serious: Yes (Hospitalization)
  Sender: FDA-Public Use
  Company Number: US-GILEAD-2009-0025846

PATIENT
  Age: 59 Year
  Sex: Female

DRUGS (16)
  1. LETAIRIS [Suspect]
     Indication: PULMONARY ARTERIAL HYPERTENSION
     Route: 048
     Dates: start: 20091006, end: 20091106
  2. SIMVASTATIN [Concomitant]
  3. COZAAR [Concomitant]
  4. ATENOLOL [Concomitant]
  5. ISOSORBIDE MONONITRATE [Concomitant]
  6. LASIX [Concomitant]
  7. ASPIRIN [Concomitant]
  8. CELLCEPT [Concomitant]
  9. PROGRAF [Concomitant]
  10. BACTRIM [Concomitant]
  11. PREDNISONE [Concomitant]
  12. SYNTHROID [Concomitant]
  13. VESICARE [Concomitant]
  14. BUPROPRION [Concomitant]
  15. NEXIUM [Concomitant]
  16. PREMARIN [Concomitant]

REACTIONS (4)
  - Pulmonary oedema [Unknown]
  - Pleural effusion [Unknown]
  - Cardiac failure congestive [Recovered/Resolved]
  - Local swelling [Recovering/Resolving]
